FAERS Safety Report 7438349-0 (Version None)
Quarter: 2011Q2

REPORT INFORMATION
  Report Type: 
  Country: None (occurrence: None)
  Receive Date: 20110426
  Receipt Date: 20110413
  Transmission Date: 20111010
  Serious: Yes (Other)
  Sender: FDA-Public Use
  Company Number: US-BAYER-2011-032572

PATIENT
  Age: 35 Year
  Sex: Female

DRUGS (1)
  1. INTERFERON BETA-1B [Suspect]
     Indication: MULTIPLE SCLEROSIS
     Dosage: 6 MIU, QOD
     Route: 058
     Dates: start: 20101103

REACTIONS (5)
  - BLISTER [None]
  - HAEMATOMA [None]
  - INJECTION SITE RASH [None]
  - INJECTION SITE PAIN [None]
  - BURNS SECOND DEGREE [None]
